FAERS Safety Report 5502595-3 (Version None)
Quarter: 2007Q4

REPORT INFORMATION
  Report Type: 
  Country: None (occurrence: None)
  Receive Date: 20071031
  Receipt Date: 20071023
  Transmission Date: 20080405
  Serious: Yes (Other)
  Sender: FDA-Public Use
  Company Number: PHEH2007US14073

PATIENT
  Sex: Male

DRUGS (2)
  1. DIOVAN [Suspect]
     Dosage: UNK, UNK
  2. ZESTRIL [Concomitant]
     Dosage: 20 MG, UNK

REACTIONS (2)
  - LEUKAEMIA [None]
  - WHITE BLOOD CELL COUNT INCREASED [None]
